FAERS Safety Report 16126344 (Version 1)
Quarter: 2019Q1

REPORT INFORMATION
  Report Type: Spontaneous
  Country: CN (occurrence: CN)
  Receive Date: 20190328
  Receipt Date: 20190328
  Transmission Date: 20190418
  Serious: Yes (Other)
  Sender: FDA-Public Use
  Company Number: CN-BAXTER-2019BAX006080

PATIENT
  Age: 62 Year
  Sex: Female
  Weight: 60 kg

DRUGS (12)
  1. 0.9% SODIUM CHLORIDE INJECTION [Suspect]
     Active Substance: SODIUM CHLORIDE
     Dosage: DOSE RE-INTRODUCED, ENDOXAN+ NS
     Route: 042
  2. 0.9% SODIUM CHLORIDE INJECTION [Suspect]
     Active Substance: SODIUM CHLORIDE
     Dosage: SECOND CHEMOTHERAPY, ENDOXAN 920 MG + NS 50 ML
     Route: 042
     Dates: start: 20190209, end: 20190209
  3. 0.9% SODIUM CHLORIDE INJECTION [Suspect]
     Active Substance: SODIUM CHLORIDE
     Dosage: SECOND CHEMOTHERAPY, PHARMORUBICIN 134 MG + NS 100 ML
     Route: 041
     Dates: start: 20190209, end: 20190209
  4. 0.9% SODIUM CHLORIDE INJECTION [Suspect]
     Active Substance: SODIUM CHLORIDE
     Dosage: DOSE RE-INTRODUCED, PHARMORUBICIN + NS
     Route: 041
  5. PHARMORUBICIN [Suspect]
     Active Substance: EPIRUBICIN
     Indication: BREAST CANCER FEMALE
     Dosage: FIRST CHEMOTHERAPY, PHARMORUBICIN + NS
     Route: 041
  6. PHARMORUBICIN [Suspect]
     Active Substance: EPIRUBICIN
     Dosage: DOSE RE-INTRODUCED, PHARMORUBICIN + NS
     Route: 041
  7. ENDOXAN [Suspect]
     Active Substance: CYCLOPHOSPHAMIDE
     Dosage: DOSE RE-INTRODUCED, DOSAGE FORM: INJECTION, ENDOXAN + NS,
     Route: 042
  8. ENDOXAN [Suspect]
     Active Substance: CYCLOPHOSPHAMIDE
     Indication: BREAST CANCER FEMALE
     Dosage: FIRST CHEMOTHERAPY, DOSAGE FORM: INJECTION, ENDOXAN + NS,
     Route: 042
  9. 0.9% SODIUM CHLORIDE INJECTION [Suspect]
     Active Substance: SODIUM CHLORIDE
     Indication: MEDICATION DILUTION
     Dosage: FIRST CHEMOTHERAPY, ENDOXAN + NS
     Route: 042
  10. 0.9% SODIUM CHLORIDE INJECTION [Suspect]
     Active Substance: SODIUM CHLORIDE
     Dosage: FIRST CHEMOTHERAPY, PHARMORUBICIN + NS
     Route: 041
  11. ENDOXAN [Suspect]
     Active Substance: CYCLOPHOSPHAMIDE
     Dosage: SECOND CHEMOTHERAPY, DOSAGE FORM: INJECTION, ENDOXAN 920 MG + NS 50 ML
     Route: 042
     Dates: start: 20190209, end: 20190209
  12. PHARMORUBICIN [Suspect]
     Active Substance: EPIRUBICIN
     Dosage: SECOND CHEMOTHERAPY, PHARMORUBICIN 134 MG + NS 100 ML
     Route: 041
     Dates: start: 20190209, end: 20190209

REACTIONS (1)
  - Agranulocytosis [Recovered/Resolved]

NARRATIVE: CASE EVENT DATE: 20190218
